FAERS Safety Report 6541221-1 (Version None)
Quarter: 2010Q1

REPORT INFORMATION
  Report Type: 
  Country: None (occurrence: None)
  Receive Date: 20100118
  Receipt Date: 20100108
  Transmission Date: 20100710
  Serious: No
  Sender: FDA-Public Use
  Company Number: US-B.I. PHARMACEUTICALS,INC./RIDGEFIELD-2010-BP-00263BP

PATIENT
  Age: 51 Year
  Sex: Male

DRUGS (7)
  1. FLOMAX [Suspect]
     Indication: BENIGN PROSTATIC HYPERPLASIA
     Dosage: 0.4 MG
     Route: 048
     Dates: start: 20080101
  2. HYZAAR [Concomitant]
     Route: 048
  3. POTASSIUM [Concomitant]
     Route: 048
  4. SINGULAIR [Concomitant]
     Route: 048
  5. PROTONIX [Concomitant]
     Route: 048
  6. EFFEXOR XR [Concomitant]
     Route: 048
  7. NAPROSYN [Concomitant]
     Route: 048

REACTIONS (2)
  - DYSURIA [None]
  - PYREXIA [None]
